FAERS Safety Report 16707174 (Version 1)
Quarter: 2019Q3

REPORT INFORMATION
  Report Type: Spontaneous
  Country: US (occurrence: US)
  Receive Date: 20190628
  Receipt Date: 20190628
  Transmission Date: 20191004
  Serious: Yes (Death)
  Sender: FDA-Public Use
  Company Number: None

PATIENT
  Age: 92 Year
  Sex: Female
  Weight: 50.8 kg

DRUGS (12)
  1. EYLEA (EYE INJECTIONS) [Concomitant]
  2. VISION VITAMIN [Concomitant]
  3. NORVASC [Suspect]
     Active Substance: AMLODIPINE BESYLATE
  4. LEVOTHYROXIN [Concomitant]
     Active Substance: LEVOTHYROXINE
  5. ZYRTEC [Concomitant]
     Active Substance: CETIRIZINE HYDROCHLORIDE
  6. CARVEDILOL. [Concomitant]
     Active Substance: CARVEDILOL
  7. 1/2 ASPIRIN [Concomitant]
  8. CALCITRIOL (HYDROCODONE ACETAMINOPHEN) [Concomitant]
  9. MULTI-VITAMIN [Concomitant]
     Active Substance: .ALPHA.-TOCOPHEROL ACETATE, DL-\ASCORBIC ACID\CYANOCOBALAMIN\FLUORIDE ION\FOLIC ACID\NIACIN\PYRIDOXINE\RIBOFLAVIN\THIAMINE\VITAMIN A\VITAMIN D
  10. AMLODIPINE [Suspect]
     Active Substance: AMLODIPINE BESYLATE
     Indication: HYPERTENSION
     Route: 048
     Dates: start: 20180823, end: 20180823
  11. TYLENOL [Concomitant]
     Active Substance: ACETAMINOPHEN
  12. PEARL PROBIOTIC [Concomitant]

REACTIONS (6)
  - Chest pain [None]
  - Blood urine [None]
  - Back pain [None]
  - Head discomfort [None]
  - Headache [None]
  - Flatulence [None]

NARRATIVE: CASE EVENT DATE: 20180823
